FAERS Safety Report 15854324 (Version 2)
Quarter: 2019Q1

REPORT INFORMATION
  Report Type: Spontaneous
  Country: FR (occurrence: FR)
  Receive Date: 20190122
  Receipt Date: 20190201
  Transmission Date: 20190417
  Serious: Yes (Other)
  Sender: FDA-Public Use
  Company Number: FR-JNJFOC-20190119740

PATIENT
  Age: 50 Year
  Sex: Female
  Weight: 125 kg

DRUGS (3)
  1. INSULIN [Concomitant]
     Active Substance: INSULIN NOS
     Route: 058
  2. SIMPONI [Suspect]
     Active Substance: GOLIMUMAB
     Indication: ANKYLOSING SPONDYLITIS
     Route: 058
     Dates: start: 20180614, end: 20181114
  3. SIMPONI [Suspect]
     Active Substance: GOLIMUMAB
     Indication: PSORIATIC ARTHROPATHY
     Route: 058
     Dates: start: 20180614, end: 20181114

REACTIONS (4)
  - Fibrin D dimer increased [Not Recovered/Not Resolved]
  - Ankylosing spondylitis [Unknown]
  - Dyspnoea [Not Recovered/Not Resolved]
  - Metabolic surgery [Unknown]

NARRATIVE: CASE EVENT DATE: 2018
